FAERS Safety Report 7644047-0 (Version None)
Quarter: 2011Q3

REPORT INFORMATION
  Report Type: 
  Country: None (occurrence: None)
  Receive Date: 20110729
  Receipt Date: 20110727
  Transmission Date: 20111222
  Serious: Yes (Other)
  Sender: FDA-Public Use
  Company Number: US-BRISTOL-MYERS SQUIBB COMPANY-15615511

PATIENT
  Age: 7 Year
  Sex: Male

DRUGS (2)
  1. GUANFACINE HYDROCHLORIDE [Suspect]
     Dates: start: 20100806
  2. ABILIFY [Suspect]
     Indication: AUTISM
     Dosage: INITIATED 2.5MG
     Route: 048
     Dates: start: 20101025

REACTIONS (1)
  - IDIOPATHIC THROMBOCYTOPENIC PURPURA [None]
